FAERS Safety Report 7509566-6 (Version None)
Quarter: 2011Q2

REPORT INFORMATION
  Report Type: 
  Country: None (occurrence: None)
  Receive Date: 20110527
  Receipt Date: 20101223
  Transmission Date: 20111010
  Serious: Yes (Other)
  Sender: FDA-Public Use
  Company Number: US-BAYER-201026848NA

PATIENT
  Sex: Female
  Weight: 70.295 kg

DRUGS (28)
  1. IBUPROFEN [Concomitant]
  2. YASMIN [Suspect]
     Indication: CONTRACEPTION
     Dosage: UNK
     Dates: start: 20050801, end: 20060101
  3. PROMETHAZINE W/ CODEINE [Concomitant]
  4. BUTALBITAL ACETAMINOPHEN AND CAFFEINE [Concomitant]
     Indication: MIGRAINE
  5. AMOXICILLIN [Concomitant]
     Dosage: UNK
     Dates: start: 20061009
  6. YAZ [Suspect]
     Indication: CONTRACEPTION
     Dosage: UNK UNK, UNK
     Route: 048
     Dates: start: 20071005, end: 20080601
  7. PROZAC [Concomitant]
     Indication: DEPRESSION
  8. AZITHROMYCIN [Concomitant]
     Dosage: UNK
     Dates: start: 20070313
  9. ALPRAZOLAM [Concomitant]
  10. YAZ [Suspect]
     Indication: DYSMENORRHOEA
  11. AMOXICILLIN AND CLAVULANATE POTASSIUM [Concomitant]
  12. RELPAX [Concomitant]
     Indication: MIGRAINE
  13. FLORINEF [Concomitant]
     Indication: OEDEMA
  14. LEVAQUIN [Concomitant]
     Dosage: UNK
     Dates: start: 20070402
  15. MIRCETTE [Concomitant]
     Dosage: UNK
     Dates: start: 20060901
  16. ORTHO CYCLEN-28 [Concomitant]
     Dosage: UNK
     Dates: start: 20061128
  17. YASMIN [Suspect]
     Indication: MENORRHAGIA
  18. YAZ [Suspect]
     Indication: MENORRHAGIA
  19. DROSPIRENONE AND ETHINYL ESTRADIOL [Suspect]
     Indication: CONTRACEPTION
     Dosage: UNK
     Dates: start: 20090101
  20. DROSPIRENONE AND ETHINYL ESTRADIOL [Suspect]
     Indication: MENORRHAGIA
  21. TOPAMAX [Concomitant]
     Indication: MIGRAINE
  22. ONDANSETRON [Concomitant]
  23. YASMIN [Suspect]
     Indication: DYSMENORRHOEA
  24. MELOXICAM [Concomitant]
  25. RISPERDAL [Concomitant]
     Indication: ANXIETY
  26. CIPROFLOXACIN [Concomitant]
  27. DROSPIRENONE AND ETHINYL ESTRADIOL [Suspect]
     Indication: DYSMENORRHOEA
  28. ALBUTEROL SULFATE AUTOHALER [Concomitant]
     Indication: ASTHMA

REACTIONS (5)
  - MEDICAL DIET [None]
  - HEPATOBILIARY SCAN ABNORMAL [None]
  - CHOLECYSTITIS CHRONIC [None]
  - GALLBLADDER DISORDER [None]
  - POST PROCEDURAL DIARRHOEA [None]
